FAERS Safety Report 7686330-9 (Version None)
Quarter: 2011Q3

REPORT INFORMATION
  Report Type: 
  Country: None (occurrence: None)
  Receive Date: 20110816
  Receipt Date: 20110809
  Transmission Date: 20111222
  Serious: Yes (Congenital Anomaly)
  Sender: FDA-Public Use
  Company Number: FR-VIIV HEALTHCARE LIMITED-A0885985A

PATIENT
  Sex: Female
  Weight: 1.7 kg

DRUGS (15)
  1. VIREAD [Suspect]
     Indication: ANTIVIRAL TREATMENT
     Route: 064
     Dates: start: 20050101, end: 20091001
  2. VITAMIN D [Concomitant]
     Route: 064
  3. ZIAGEN [Suspect]
     Route: 064
     Dates: start: 20091119
  4. SPASFON [Concomitant]
     Route: 064
  5. AMOXICILLIN TRIHYDRATE [Concomitant]
     Route: 064
  6. NICARDIPINE HCL [Concomitant]
     Route: 064
  7. REYATAZ [Suspect]
     Indication: ANTIVIRAL TREATMENT
     Route: 064
     Dates: start: 20091119
  8. NORVIR [Suspect]
     Indication: ANTIVIRAL TREATMENT
     Route: 064
     Dates: start: 20091119
  9. VIREAD [Suspect]
     Route: 064
     Dates: start: 20091119
  10. ZIAGEN [Suspect]
     Indication: ANTIVIRAL TREATMENT
     Route: 064
     Dates: end: 20091001
  11. CONCURRENT MEDICATIONS [Concomitant]
     Route: 064
  12. CELESTONE [Concomitant]
     Route: 064
  13. SUSTIVA [Suspect]
     Indication: ANTIVIRAL TREATMENT
     Route: 064
     Dates: end: 20091001
  14. RETROVIR [Suspect]
     Indication: ANTIVIRAL TREATMENT
     Route: 064
     Dates: start: 20100406, end: 20100406
  15. RETROVIR [Concomitant]
     Route: 064
     Dates: start: 20100406, end: 20100406

REACTIONS (8)
  - MATERNAL EXPOSURE DURING PREGNANCY [None]
  - CONGENITAL PULMONARY VALVE ATRESIA [None]
  - CONGENITAL TRICUSPID VALVE ATRESIA [None]
  - PREMATURE BABY [None]
  - SHORTENED CERVIX [None]
  - NEONATAL RESPIRATORY DISTRESS SYNDROME [None]
  - CARDIOMEGALY [None]
  - VENTRICULAR HYPOPLASIA [None]
